FAERS Safety Report 4972971-6 (Version None)
Quarter: 2006Q2

REPORT INFORMATION
  Report Type: 
  Country: None (occurrence: None)
  Receive Date: 20060414
  Receipt Date: 20060104
  Transmission Date: 20061013
  Serious: Yes (Hospitalization)
  Sender: FDA-Public Use
  Company Number: US-GLAXOSMITHKLINE-A0588890A

PATIENT
  Age: 13 Year
  Sex: Female

DRUGS (3)
  1. PAXIL CR [Suspect]
     Indication: GENERALISED ANXIETY DISORDER
     Dosage: 25MG PER DAY
     Route: 048
     Dates: start: 20020101, end: 20030101
  2. TYLENOL (GELTAB) [Suspect]
     Route: 048
  3. DEPAKOTE [Concomitant]
     Indication: AFFECT LABILITY
     Dosage: 500MG PER DAY
     Route: 048

REACTIONS (35)
  - ABNORMAL BEHAVIOUR [None]
  - ADJUSTMENT DISORDER WITH DEPRESSED MOOD [None]
  - AGGRESSION [None]
  - ANGER [None]
  - ANHEDONIA [None]
  - ANOREXIA [None]
  - ASTHENIA [None]
  - ATTENTION DEFICIT/HYPERACTIVITY DISORDER [None]
  - BIPOLAR DISORDER [None]
  - BURNS SECOND DEGREE [None]
  - BURNS THIRD DEGREE [None]
  - CONFUSIONAL STATE [None]
  - DIZZINESS [None]
  - EDUCATIONAL PROBLEM [None]
  - HEADACHE [None]
  - IMPULSIVE BEHAVIOUR [None]
  - INFECTIOUS MONONUCLEOSIS [None]
  - INTENTIONAL OVERDOSE [None]
  - LETHARGY [None]
  - LIPASE INCREASED [None]
  - MAJOR DEPRESSION [None]
  - OPPOSITIONAL DEFIANT DISORDER [None]
  - OVERDOSE [None]
  - PARENT-CHILD PROBLEM [None]
  - REFUSAL OF TREATMENT BY PATIENT [None]
  - SCAR [None]
  - SELF ESTEEM DECREASED [None]
  - SELF MUTILATION [None]
  - SKIN LACERATION [None]
  - SLEEP DISORDER [None]
  - SOCIAL AVOIDANT BEHAVIOUR [None]
  - SUICIDE ATTEMPT [None]
  - TEARFULNESS [None]
  - THERMAL BURN [None]
  - VOMITING [None]
